FAERS Safety Report 6220607-9 (Version None)
Quarter: 2009Q2

REPORT INFORMATION
  Report Type: 
  Country: None (occurrence: None)
  Receive Date: 20090610
  Receipt Date: 20090602
  Transmission Date: 20091009
  Serious: Yes (Other)
  Sender: FDA-Public Use
  Company Number: US-ROCHE-626577

PATIENT
  Sex: Male
  Weight: 77.1 kg

DRUGS (9)
  1. CAPECITABINE [Suspect]
     Dosage: FORM: PILLS
     Route: 048
     Dates: start: 20090310, end: 20090403
  2. CARDIZEM [Concomitant]
  3. NEXIUM [Concomitant]
     Route: 048
  4. TRAZODONE HCL [Concomitant]
  5. MS CONTIN [Concomitant]
     Indication: PAIN
     Route: 048
     Dates: start: 20090108
  6. NYSTATIN [Concomitant]
     Dosage: DOSE: 100.000 MICROLITRE/ML, FREQUENCY: 5 ML
     Route: 048
     Dates: start: 20090115
  7. DIFLUCAN [Concomitant]
     Route: 048
     Dates: start: 20090122
  8. MEGACE [Concomitant]
     Dosage: 10-15 CC DAILY
     Route: 048
     Dates: start: 20090106
  9. VITAMIN B6 [Concomitant]

REACTIONS (2)
  - NEOPLASM MALIGNANT [None]
  - STOMATITIS [None]
